FAERS Safety Report 25499929 (Version 1)
Quarter: 2025Q2

REPORT INFORMATION
  Report Type: Spontaneous
  Country: US (occurrence: None)
  Receive Date: 20250630
  Receipt Date: 20250630
  Transmission Date: 20250717
  Serious: Yes (Death)
  Sender: FDA-CTU
  Company Number: None

PATIENT
  Age: 82 Year
  Sex: Female
  Weight: 59.85 kg

DRUGS (7)
  1. REVLIMID [Suspect]
     Active Substance: LENALIDOMIDE
     Indication: Myelodysplastic syndrome
     Dosage: FREQUENCY : DAILY;?
     Route: 048
     Dates: start: 20241113, end: 20250626
  2. Ferrex 150 mg iron capsule [Concomitant]
  3. folic acid 800 mcg tablet [Concomitant]
  4. lercanil 9.4mg [Concomitant]
  5. omeprazole 20 mg tablet,delayed release [Concomitant]
  6. ondansetron 4 mg disintegrating tablet [Concomitant]
  7. XARELTO [Concomitant]
     Active Substance: RIVAROXABAN

REACTIONS (1)
  - Death [None]

NARRATIVE: CASE EVENT DATE: 20250626
